FAERS Safety Report 21124399 (Version 3)
Quarter: 2023Q2

REPORT INFORMATION
  Report Type: Spontaneous
  Country: US (occurrence: US)
  Receive Date: 20220725
  Receipt Date: 20230425
  Transmission Date: 20230722
  Serious: Yes (Other)
  Sender: FDA-Public Use
  Company Number: US-BRISTOL-MYERS SQUIBB COMPANY-2022-070680

PATIENT
  Age: 57 Year
  Sex: Female

DRUGS (2)
  1. ORENCIA [Suspect]
     Active Substance: ABATACEPT
     Indication: Product used for unknown indication
     Dosage: ONE PEN; STRENGTH AND PRESENTATION OF THE AE: 125MG/ML
     Route: 058
  2. ORENCIA [Suspect]
     Active Substance: ABATACEPT

REACTIONS (2)
  - Osteomyelitis [Unknown]
  - Adverse event [Unknown]
